FAERS Safety Report 12928888 (Version 38)
Quarter: 2025Q2

REPORT INFORMATION
  Report Type: Spontaneous
  Country: CA (occurrence: CA)
  Receive Date: 20161110
  Receipt Date: 20250625
  Transmission Date: 20250717
  Serious: Yes (Hospitalization, Disabling, Other)
  Sender: BRISTOL-MYERS SQUIBB COMPANY
  Company Number: CA-BRISTOL-MYERS SQUIBB COMPANY-BMS-2016-091881

PATIENT
  Age: 55 Year
  Sex: Female

DRUGS (223)
  1. ORENCIA [Suspect]
     Active Substance: ABATACEPT
     Indication: Rheumatoid arthritis
     Route: 042
  2. ORENCIA [Suspect]
     Active Substance: ABATACEPT
     Route: 042
  3. ORENCIA [Suspect]
     Active Substance: ABATACEPT
     Route: 042
  4. ORENCIA [Suspect]
     Active Substance: ABATACEPT
     Route: 042
  5. ORENCIA [Suspect]
     Active Substance: ABATACEPT
     Route: 042
  6. TRIAMCINOLONE ACETONIDE [Suspect]
     Active Substance: TRIAMCINOLONE ACETONIDE
     Indication: Product used for unknown indication
     Route: 014
  7. TRIAMCINOLONE ACETONIDE [Suspect]
     Active Substance: TRIAMCINOLONE ACETONIDE
     Route: 014
  8. ORENCIA [Suspect]
     Active Substance: ABATACEPT
     Indication: Rheumatoid arthritis
     Route: 058
  9. ORENCIA [Suspect]
     Active Substance: ABATACEPT
     Route: 058
  10. ORENCIA [Suspect]
     Active Substance: ABATACEPT
     Route: 058
  11. ORENCIA [Suspect]
     Active Substance: ABATACEPT
     Route: 058
  12. TRIAMCINOLONE ACETONIDE [Suspect]
     Active Substance: TRIAMCINOLONE ACETONIDE
     Indication: Product used for unknown indication
  13. ORENCIA [Suspect]
     Active Substance: ABATACEPT
     Indication: Rheumatoid arthritis
  14. ORENCIA [Suspect]
     Active Substance: ABATACEPT
  15. ORENCIA [Suspect]
     Active Substance: ABATACEPT
  16. ACTEMRA [Concomitant]
     Active Substance: TOCILIZUMAB
     Indication: Rheumatoid arthritis
     Route: 042
  17. ACTEMRA [Concomitant]
     Active Substance: TOCILIZUMAB
     Route: 058
  18. ACTEMRA [Concomitant]
     Active Substance: TOCILIZUMAB
     Dosage: 8 MILLIGRAM
     Route: 042
  19. ACTEMRA [Concomitant]
     Active Substance: TOCILIZUMAB
     Route: 042
  20. ACTEMRA [Concomitant]
     Active Substance: TOCILIZUMAB
     Route: 042
  21. ACTEMRA [Concomitant]
     Active Substance: TOCILIZUMAB
     Route: 042
  22. ACTEMRA [Concomitant]
     Active Substance: TOCILIZUMAB
     Route: 042
  23. ACTEMRA [Concomitant]
     Active Substance: TOCILIZUMAB
     Route: 042
  24. ACTEMRA [Concomitant]
     Active Substance: TOCILIZUMAB
     Route: 042
  25. ANAKINRA [Concomitant]
     Active Substance: ANAKINRA
     Indication: Rheumatoid arthritis
     Route: 058
  26. ANAKINRA [Concomitant]
     Active Substance: ANAKINRA
     Route: 058
  27. ANAKINRA [Concomitant]
     Active Substance: ANAKINRA
     Route: 048
  28. ANAKINRA [Concomitant]
     Active Substance: ANAKINRA
     Route: 058
  29. ANAKINRA [Concomitant]
     Active Substance: ANAKINRA
     Route: 058
  30. ANAKINRA [Concomitant]
     Active Substance: ANAKINRA
     Route: 058
  31. ANAKINRA [Concomitant]
     Active Substance: ANAKINRA
  32. LEFLUNOMIDE [Concomitant]
     Active Substance: LEFLUNOMIDE
     Indication: Rheumatoid arthritis
     Dosage: 20 MILLIGRAM, QH
     Route: 048
  33. LEFLUNOMIDE [Concomitant]
     Active Substance: LEFLUNOMIDE
     Dosage: 20 MILLIGRAM, QD
     Route: 048
  34. LEFLUNOMIDE [Concomitant]
     Active Substance: LEFLUNOMIDE
     Route: 048
  35. LEFLUNOMIDE [Concomitant]
     Active Substance: LEFLUNOMIDE
     Dosage: 20 MILLIGRAM
  36. LEFLUNOMIDE [Concomitant]
     Active Substance: LEFLUNOMIDE
     Dosage: 1 DOSAGE FORM, QD
  37. LEFLUNOMIDE [Concomitant]
     Active Substance: LEFLUNOMIDE
     Route: 048
  38. LEFLUNOMIDE [Concomitant]
     Active Substance: LEFLUNOMIDE
     Dosage: 35 MILLIGRAM, QWK
     Route: 048
  39. LEFLUNOMIDE [Concomitant]
     Active Substance: LEFLUNOMIDE
     Route: 048
  40. ARAVA [Concomitant]
     Active Substance: LEFLUNOMIDE
     Indication: Rheumatoid arthritis
     Route: 048
  41. ARAVA [Concomitant]
     Active Substance: LEFLUNOMIDE
     Route: 048
  42. ARAVA [Concomitant]
     Active Substance: LEFLUNOMIDE
     Route: 048
  43. ARAVA [Concomitant]
     Active Substance: LEFLUNOMIDE
     Route: 058
  44. ENBREL [Concomitant]
     Active Substance: ETANERCEPT
     Indication: Rheumatoid arthritis
     Dosage: 25 MILLIGRAM, QWK
     Route: 058
  45. ENBREL [Concomitant]
     Active Substance: ETANERCEPT
     Route: 058
  46. ENBREL [Concomitant]
     Active Substance: ETANERCEPT
  47. ENBREL [Concomitant]
     Active Substance: ETANERCEPT
  48. ENBREL [Concomitant]
     Active Substance: ETANERCEPT
  49. ENBREL [Concomitant]
     Active Substance: ETANERCEPT
     Route: 058
  50. ENBREL [Concomitant]
     Active Substance: ETANERCEPT
     Route: 058
  51. GOLD [Concomitant]
     Active Substance: GOLD
     Indication: Rheumatoid arthritis
  52. HUMIRA [Concomitant]
     Active Substance: ADALIMUMAB
     Indication: Rheumatoid arthritis
     Route: 058
  53. HUMIRA [Concomitant]
     Active Substance: ADALIMUMAB
     Dosage: UNK
     Route: 058
  54. HUMIRA [Concomitant]
     Active Substance: ADALIMUMAB
     Route: 058
  55. HYDROXYCHLOROQUINE [Concomitant]
     Active Substance: HYDROXYCHLOROQUINE
     Indication: Rheumatoid arthritis
     Dosage: 300 MILLIGRAM, QD?CYCLICAL
     Route: 048
  56. HYDROXYCHLOROQUINE [Concomitant]
     Active Substance: HYDROXYCHLOROQUINE
     Dosage: 200 MILLIGRAM, BID
  57. HYDROXYCHLOROQUINE [Concomitant]
     Active Substance: HYDROXYCHLOROQUINE
     Dosage: 20 MILLIGRAM
     Route: 048
  58. HYDROXYCHLOROQUINE [Concomitant]
     Active Substance: HYDROXYCHLOROQUINE
     Dosage: 1 DOSAGE FORM
  59. HYDROXYCHLOROQUINE [Concomitant]
     Active Substance: HYDROXYCHLOROQUINE
     Route: 048
  60. HYDROXYCHLOROQUINE [Concomitant]
     Active Substance: HYDROXYCHLOROQUINE
     Route: 048
  61. HYDROXYCHLOROQUINE [Concomitant]
     Active Substance: HYDROXYCHLOROQUINE
     Route: 048
  62. LEFLUNOMIDE [Concomitant]
     Active Substance: LEFLUNOMIDE
     Indication: Rheumatoid arthritis
     Route: 048
  63. LEFLUNOMIDE [Concomitant]
     Active Substance: LEFLUNOMIDE
     Dosage: 20 MILLIGRAM, QH
     Route: 048
  64. LEFLUNOMIDE [Concomitant]
     Active Substance: LEFLUNOMIDE
  65. LEFLUNOMIDE [Concomitant]
     Active Substance: LEFLUNOMIDE
     Route: 048
  66. LEFLUNOMIDE [Concomitant]
     Active Substance: LEFLUNOMIDE
  67. LEFLUNOMIDE [Concomitant]
     Active Substance: LEFLUNOMIDE
     Route: 048
  68. LEFLUNOMIDE [Concomitant]
     Active Substance: LEFLUNOMIDE
  69. REMICADE [Concomitant]
     Active Substance: INFLIXIMAB
     Indication: Rheumatoid arthritis
     Dosage: 30 MILLIGRAM, QWK
     Route: 042
  70. REMICADE [Concomitant]
     Active Substance: INFLIXIMAB
     Route: 042
  71. REMICADE [Concomitant]
     Active Substance: INFLIXIMAB
     Route: 042
  72. REMICADE [Concomitant]
     Active Substance: INFLIXIMAB
     Route: 042
  73. REMICADE [Concomitant]
     Active Substance: INFLIXIMAB
     Route: 042
  74. REMICADE [Concomitant]
     Active Substance: INFLIXIMAB
     Route: 042
  75. CIMZIA [Concomitant]
     Active Substance: CERTOLIZUMAB PEGOL
     Indication: Rheumatoid arthritis
     Route: 058
  76. CIMZIA [Concomitant]
     Active Substance: CERTOLIZUMAB PEGOL
  77. SIMPONI [Concomitant]
     Active Substance: GOLIMUMAB
     Indication: Rheumatoid arthritis
     Route: 058
  78. SIMPONI [Concomitant]
     Active Substance: GOLIMUMAB
     Dosage: UNK
     Route: 058
  79. SIMPONI [Concomitant]
     Active Substance: GOLIMUMAB
     Route: 058
  80. ACTONEL [Concomitant]
     Active Substance: RISEDRONATE SODIUM
     Indication: Product used for unknown indication
     Dosage: 35 MILLIGRAM, QWK
     Route: 048
  81. METHOTREXATE [Concomitant]
     Active Substance: METHOTREXATE
     Indication: Rheumatoid arthritis
     Dates: end: 20180331
  82. METHOTREXATE [Concomitant]
     Active Substance: METHOTREXATE
     Route: 058
  83. METHOTREXATE [Concomitant]
     Active Substance: METHOTREXATE
     Dosage: 25 MILLIGRAM, QWK
  84. METHOTREXATE [Concomitant]
     Active Substance: METHOTREXATE
     Dosage: 25 MILLIGRAM, QD
  85. METHOTREXATE [Concomitant]
     Active Substance: METHOTREXATE
     Dosage: 1 EVERY 1 WEEKS
     Route: 048
  86. METHOTREXATE [Concomitant]
     Active Substance: METHOTREXATE
     Route: 058
  87. METHOTREXATE [Concomitant]
     Active Substance: METHOTREXATE
     Route: 058
  88. METHOTREXATE [Concomitant]
     Active Substance: METHOTREXATE
     Route: 058
  89. METHOTREXATE [Concomitant]
     Active Substance: METHOTREXATE
     Route: 058
  90. METHOTREXATE [Concomitant]
     Active Substance: METHOTREXATE
     Route: 058
  91. METHOTREXATE [Concomitant]
     Active Substance: METHOTREXATE
     Route: 058
  92. METHOTREXATE [Concomitant]
     Active Substance: METHOTREXATE
  93. METHOTREXATE [Concomitant]
     Active Substance: METHOTREXATE
  94. METHOTREXATE [Concomitant]
     Active Substance: METHOTREXATE
     Route: 048
  95. METHOTREXATE [Concomitant]
     Active Substance: METHOTREXATE
     Route: 048
  96. METHOTREXATE [Concomitant]
     Active Substance: METHOTREXATE
     Route: 058
  97. PLAQUENIL [Concomitant]
     Active Substance: HYDROXYCHLOROQUINE SULFATE
     Indication: Rheumatoid arthritis
     Dosage: 300 MILLIGRAM, QD
     Route: 048
  98. PLAQUENIL [Concomitant]
     Active Substance: HYDROXYCHLOROQUINE SULFATE
     Route: 048
  99. HYDROXYCHLOROQUINE SULFATE [Concomitant]
     Active Substance: HYDROXYCHLOROQUINE SULFATE
     Indication: Rheumatoid arthritis
     Dosage: 300 MILLIGRAM, QD
  100. HYDROXYCHLOROQUINE SULFATE [Concomitant]
     Active Substance: HYDROXYCHLOROQUINE SULFATE
     Dosage: 200 MILLIGRAM, BID
  101. HYDROXYCHLOROQUINE SULFATE [Concomitant]
     Active Substance: HYDROXYCHLOROQUINE SULFATE
     Dosage: UNK, QWK
  102. HYDROXYCHLOROQUINE SULFATE [Concomitant]
     Active Substance: HYDROXYCHLOROQUINE SULFATE
     Dosage: 300 MILLIGRAM, QH
  103. HYDROXYCHLOROQUINE SULFATE [Concomitant]
     Active Substance: HYDROXYCHLOROQUINE SULFATE
     Route: 048
  104. HYDROXYCHLOROQUINE SULFATE [Concomitant]
     Active Substance: HYDROXYCHLOROQUINE SULFATE
     Dosage: UNK UNK, QD
  105. HYDROXYCHLOROQUINE SULFATE [Concomitant]
     Active Substance: HYDROXYCHLOROQUINE SULFATE
     Dosage: 300 MILLIGRAM, QD
     Route: 048
  106. HYDROXYCHLOROQUINE SULFATE [Concomitant]
     Active Substance: HYDROXYCHLOROQUINE SULFATE
     Dosage: 1 DOSAGE FORM, QD
     Route: 048
  107. HYDROXYCHLOROQUINE SULFATE [Concomitant]
     Active Substance: HYDROXYCHLOROQUINE SULFATE
     Route: 048
  108. HYDROXYCHLOROQUINE SULFATE [Concomitant]
     Active Substance: HYDROXYCHLOROQUINE SULFATE
     Dosage: 20 MILLIGRAM, 2 EVERY 1 DAYS
  109. HYDROXYCHLOROQUINE SULFATE [Concomitant]
     Active Substance: HYDROXYCHLOROQUINE SULFATE
     Route: 048
  110. HYDROXYCHLOROQUINE SULFATE [Concomitant]
     Active Substance: HYDROXYCHLOROQUINE SULFATE
     Dosage: 300 MILLIGRAM, QD
  111. RISEDRONATE SODIUM [Concomitant]
     Active Substance: RISEDRONATE SODIUM
     Indication: Product used for unknown indication
     Dosage: 35 MILLIGRAM, QWK
     Route: 048
  112. RISEDRONATE SODIUM [Concomitant]
     Active Substance: RISEDRONATE SODIUM
     Dosage: 35 MILLIGRAM, QWK
  113. RISEDRONATE SODIUM [Concomitant]
     Active Substance: RISEDRONATE SODIUM
  114. RISEDRONATE SODIUM [Concomitant]
     Active Substance: RISEDRONATE SODIUM
     Route: 048
  115. RISEDRONATE SODIUM [Concomitant]
     Active Substance: RISEDRONATE SODIUM
     Route: 048
  116. XELJANZ [Concomitant]
     Active Substance: TOFACITINIB CITRATE
     Indication: Rheumatoid arthritis
     Dosage: 5 MILLIGRAM, BID
     Route: 048
  117. XELJANZ [Concomitant]
     Active Substance: TOFACITINIB CITRATE
     Dosage: 10 MILLIGRAM, QD
     Route: 048
  118. XELJANZ [Concomitant]
     Active Substance: TOFACITINIB CITRATE
     Dosage: 5 MILLIGRAM, BID
     Route: 048
  119. XELJANZ [Concomitant]
     Active Substance: TOFACITINIB CITRATE
     Dosage: 5 MILLIGRAM, BID
     Route: 048
  120. XELJANZ [Concomitant]
     Active Substance: TOFACITINIB CITRATE
     Route: 048
  121. XELJANZ [Concomitant]
     Active Substance: TOFACITINIB CITRATE
     Route: 048
  122. XELJANZ [Concomitant]
     Active Substance: TOFACITINIB CITRATE
     Route: 048
  123. GOLD SODIUM THIOMALATE [Concomitant]
     Active Substance: GOLD SODIUM THIOMALATE
     Indication: Rheumatoid arthritis
  124. RISEDRONIC ACID [Concomitant]
     Active Substance: RISEDRONIC ACID
     Indication: Rheumatoid arthritis
     Dosage: 35 MILLIGRAM, QWK
  125. RITUXIMAB [Concomitant]
     Active Substance: RITUXIMAB
     Indication: Rheumatoid arthritis
     Route: 042
  126. RITUXIMAB [Concomitant]
     Active Substance: RITUXIMAB
     Route: 041
  127. RITUXIMAB [Concomitant]
     Active Substance: RITUXIMAB
     Route: 042
  128. RITUXIMAB [Concomitant]
     Active Substance: RITUXIMAB
     Dosage: 1 GRAM
     Route: 042
  129. RITUXIMAB [Concomitant]
     Active Substance: RITUXIMAB
     Route: 042
  130. RITUXIMAB [Concomitant]
     Active Substance: RITUXIMAB
     Route: 058
  131. RITUXIMAB [Concomitant]
     Active Substance: RITUXIMAB
     Route: 042
  132. RITUXIMAB [Concomitant]
     Active Substance: RITUXIMAB
     Route: 058
  133. RITUXIMAB [Concomitant]
     Active Substance: RITUXIMAB
  134. RISEDRONATE SODIUM [Concomitant]
     Active Substance: RISEDRONATE SODIUM
     Indication: Product used for unknown indication
     Dosage: 35 MILLIGRAM, QWK
     Route: 048
  135. RISEDRONATE SODIUM [Concomitant]
     Active Substance: RISEDRONATE SODIUM
     Dosage: UNK
  136. METHOTREXATE [Concomitant]
     Active Substance: METHOTREXATE
     Indication: Rheumatoid arthritis
     Dosage: 20 MILLIGRAM, QWK
     Route: 048
  137. METHOTREXATE [Concomitant]
     Active Substance: METHOTREXATE
     Route: 058
  138. METHOTREXATE [Concomitant]
     Active Substance: METHOTREXATE
     Route: 058
  139. METHOTREXATE [Concomitant]
     Active Substance: METHOTREXATE
     Route: 058
  140. METHOTREXATE [Concomitant]
     Active Substance: METHOTREXATE
  141. METHOTREXATE [Concomitant]
     Active Substance: METHOTREXATE
     Route: 058
  142. METHOTREXATE [Concomitant]
     Active Substance: METHOTREXATE
  143. METHOTREXATE [Concomitant]
     Active Substance: METHOTREXATE
     Route: 048
  144. METHOTREXATE [Concomitant]
     Active Substance: METHOTREXATE
     Route: 048
  145. METHOTREXATE [Concomitant]
     Active Substance: METHOTREXATE
  146. METHOTREXATE [Concomitant]
     Active Substance: METHOTREXATE
     Route: 058
  147. METHOTREXATE [Concomitant]
     Active Substance: METHOTREXATE
  148. METHOTREXATE [Concomitant]
     Active Substance: METHOTREXATE
  149. METHOTREXATE [Concomitant]
     Active Substance: METHOTREXATE
  150. METHOTREXATE [Concomitant]
     Active Substance: METHOTREXATE
  151. FOLIC ACID [Concomitant]
     Active Substance: FOLIC ACID
     Indication: Rheumatoid arthritis
  152. FOLIC ACID [Concomitant]
     Active Substance: FOLIC ACID
  153. RISEDRONATE SODIUM [Concomitant]
     Active Substance: RISEDRONATE SODIUM
     Indication: Rheumatoid arthritis
     Dosage: 35 MILLIGRAM, QWK
     Route: 048
  154. PREDNISONE [Concomitant]
     Active Substance: PREDNISONE
     Indication: Rheumatoid arthritis
  155. PREDNISONE [Concomitant]
     Active Substance: PREDNISONE
     Route: 048
  156. PREDNISONE [Concomitant]
     Active Substance: PREDNISONE
     Route: 048
  157. PREDNISONE [Concomitant]
     Active Substance: PREDNISONE
     Route: 048
  158. PREDNISONE [Concomitant]
     Active Substance: PREDNISONE
     Route: 042
  159. PREDNISONE [Concomitant]
     Active Substance: PREDNISONE
  160. SULFASALAZINE [Concomitant]
     Active Substance: SULFASALAZINE
     Indication: Rheumatoid arthritis
  161. SULFASALAZINE [Concomitant]
     Active Substance: SULFASALAZINE
     Route: 058
  162. SULFASALAZINE [Concomitant]
     Active Substance: SULFASALAZINE
     Route: 058
  163. SULFASALAZINE [Concomitant]
     Active Substance: SULFASALAZINE
     Route: 058
  164. SULFASALAZINE [Concomitant]
     Active Substance: SULFASALAZINE
     Route: 058
  165. SULFASALAZINE [Concomitant]
     Active Substance: SULFASALAZINE
     Route: 058
  166. SULFASALAZINE [Concomitant]
     Active Substance: SULFASALAZINE
     Route: 048
  167. WELLBUTRIN [Concomitant]
     Active Substance: BUPROPION HYDROCHLORIDE
     Indication: Product used for unknown indication
  168. ADALIMUMAB [Concomitant]
     Active Substance: ADALIMUMAB
     Indication: Rheumatoid arthritis
     Route: 058
  169. ADALIMUMAB [Concomitant]
     Active Substance: ADALIMUMAB
     Route: 058
  170. ADALIMUMAB [Concomitant]
     Active Substance: ADALIMUMAB
     Route: 058
  171. NAPROXEN [Concomitant]
     Active Substance: NAPROXEN
     Indication: Product used for unknown indication
  172. PREDNISONE [Concomitant]
     Active Substance: PREDNISONE
     Indication: Product used for unknown indication
  173. PREDNISONE [Concomitant]
     Active Substance: PREDNISONE
  174. PREDNISONE [Concomitant]
     Active Substance: PREDNISONE
  175. PREDNISONE [Concomitant]
     Active Substance: PREDNISONE
     Route: 048
  176. PREDNISONE [Concomitant]
     Active Substance: PREDNISONE
     Route: 048
  177. PREDNISONE [Concomitant]
     Active Substance: PREDNISONE
     Route: 048
  178. CELECOXIB [Concomitant]
     Active Substance: CELECOXIB
     Indication: Rheumatoid arthritis
     Route: 042
  179. CELECOXIB [Concomitant]
     Active Substance: CELECOXIB
     Route: 048
  180. CETIRIZINE HYDROCHLORIDE [Concomitant]
     Active Substance: CETIRIZINE HYDROCHLORIDE
     Indication: Rheumatoid arthritis
     Route: 042
  181. CETIRIZINE HYDROCHLORIDE [Concomitant]
     Active Substance: CETIRIZINE HYDROCHLORIDE
  182. CORTISONE ACETATE [Concomitant]
     Active Substance: CORTISONE ACETATE
     Indication: Rheumatoid arthritis
     Route: 061
  183. COSENTYX [Concomitant]
     Active Substance: SECUKINUMAB
     Indication: Psoriatic arthropathy
  184. DESOXIMETASONE [Concomitant]
     Active Substance: DESOXIMETASONE
     Indication: Rheumatoid arthritis
     Route: 048
  185. DICLOFENAC SODIUM [Concomitant]
     Active Substance: DICLOFENAC SODIUM
     Indication: Product used for unknown indication
  186. ERELZI [Concomitant]
     Active Substance: ETANERCEPT-SZZS
     Indication: Rheumatoid arthritis
     Route: 058
  187. ERELZI [Concomitant]
     Active Substance: ETANERCEPT-SZZS
     Route: 058
  188. ERELZI [Concomitant]
     Active Substance: ETANERCEPT-SZZS
     Route: 058
  189. ERELZI [Concomitant]
     Active Substance: ETANERCEPT-SZZS
     Route: 058
  190. ERELZI [Concomitant]
     Active Substance: ETANERCEPT-SZZS
  191. ERELZI [Concomitant]
     Active Substance: ETANERCEPT-SZZS
     Route: 058
  192. ERELZI [Concomitant]
     Active Substance: ETANERCEPT-SZZS
  193. HUMAN IMMUNOGLOBULIN G [Concomitant]
     Active Substance: HUMAN IMMUNOGLOBULIN G
     Indication: Rheumatoid arthritis
  194. HUMAN IMMUNOGLOBULIN G [Concomitant]
     Active Substance: HUMAN IMMUNOGLOBULIN G
     Route: 042
  195. INFLIXIMAB [Concomitant]
     Active Substance: INFLIXIMAB
     Indication: Product used for unknown indication
     Route: 042
  196. INFLIXIMAB [Concomitant]
     Active Substance: INFLIXIMAB
     Route: 042
  197. LEVOCETIRIZINE [Concomitant]
     Active Substance: LEVOCETIRIZINE
     Indication: Product used for unknown indication
  198. LEVOCETIRIZINE HYDROCHLORIDE [Concomitant]
     Active Substance: LEVOCETIRIZINE HYDROCHLORIDE
     Indication: Rheumatoid arthritis
  199. NAPROXEN [Concomitant]
     Active Substance: NAPROXEN
     Indication: Rheumatoid arthritis
  200. NAPROXEN [Concomitant]
     Active Substance: NAPROXEN
  201. NAPROXEN [Concomitant]
     Active Substance: NAPROXEN
  202. NAPROXEN SODIUM [Concomitant]
     Active Substance: NAPROXEN SODIUM
     Indication: Rheumatoid arthritis
  203. NAPROXEN SODIUM [Concomitant]
     Active Substance: NAPROXEN SODIUM
  204. NAPROXEN SODIUM [Concomitant]
     Active Substance: NAPROXEN SODIUM
  205. TRIAMCINOLONE [Concomitant]
     Active Substance: TRIAMCINOLONE
     Indication: Product used for unknown indication
  206. TRIAMCINOLONE [Concomitant]
     Active Substance: TRIAMCINOLONE
     Route: 014
  207. PHTHALYLSULFATHIAZOLE [Concomitant]
     Active Substance: PHTHALYLSULFATHIAZOLE
     Indication: Rheumatoid arthritis
  208. TOCILIZUMAB [Concomitant]
     Active Substance: TOCILIZUMAB
     Indication: Rheumatoid arthritis
  209. TOCILIZUMAB [Concomitant]
     Active Substance: TOCILIZUMAB
  210. CALCIUM GLUCONATE [Concomitant]
     Active Substance: CALCIUM GLUCONATE
     Indication: Product used for unknown indication
  211. PANTOPRAZOLE SODIUM [Concomitant]
     Active Substance: PANTOPRAZOLE SODIUM
     Indication: Product used for unknown indication
  212. QUETIAPINE FUMARATE [Concomitant]
     Active Substance: QUETIAPINE FUMARATE
     Indication: Product used for unknown indication
  213. RAMIPRIL [Concomitant]
     Active Substance: RAMIPRIL
     Indication: Product used for unknown indication
  214. CETIRIZINE [Concomitant]
     Active Substance: CETIRIZINE HYDROCHLORIDE
     Indication: Rheumatoid arthritis
  215. GAMMAGARD [Concomitant]
     Active Substance: HUMAN IMMUNOGLOBULIN G
     Indication: Product used for unknown indication
  216. PANTOPRAZOLE SODIUM [Concomitant]
     Active Substance: PANTOPRAZOLE SODIUM
     Indication: Product used for unknown indication
  217. PSEUDOEPHEDRINE HYDROCHLORIDE [Concomitant]
     Active Substance: PSEUDOEPHEDRINE HYDROCHLORIDE
     Indication: Product used for unknown indication
  218. ALENDRONATE SODIUM [Concomitant]
     Active Substance: ALENDRONATE SODIUM
     Indication: Rheumatoid arthritis
  219. PSEUDOEPHEDRINE [Concomitant]
     Active Substance: PSEUDOEPHEDRINE
     Indication: Product used for unknown indication
  220. QUETIAPINE [Concomitant]
     Active Substance: QUETIAPINE
     Indication: Product used for unknown indication
  221. IMMUNOGLOBULINS [Concomitant]
     Indication: Product used for unknown indication
  222. IMMUNOGLOBULINS [Concomitant]
     Route: 042
  223. ALENDRONATE SODIUM [Concomitant]
     Active Substance: ALENDRONATE SODIUM
     Indication: Rheumatoid arthritis

REACTIONS (64)
  - Arthralgia [Not Recovered/Not Resolved]
  - Arthropathy [Not Recovered/Not Resolved]
  - C-reactive protein increased [Not Recovered/Not Resolved]
  - Condition aggravated [Not Recovered/Not Resolved]
  - Hepatic enzyme increased [Not Recovered/Not Resolved]
  - Joint swelling [Not Recovered/Not Resolved]
  - Pneumonia [Not Recovered/Not Resolved]
  - Treatment failure [Not Recovered/Not Resolved]
  - Rheumatoid factor positive [Not Recovered/Not Resolved]
  - Drug ineffective [Not Recovered/Not Resolved]
  - Infection [Not Recovered/Not Resolved]
  - Loss of consciousness [Not Recovered/Not Resolved]
  - Mobility decreased [Not Recovered/Not Resolved]
  - Nausea [Not Recovered/Not Resolved]
  - Nodule [Not Recovered/Not Resolved]
  - Red blood cell sedimentation rate abnormal [Not Recovered/Not Resolved]
  - Rheumatoid arthritis [Not Recovered/Not Resolved]
  - Synovitis [Not Recovered/Not Resolved]
  - Drug hypersensitivity [Not Recovered/Not Resolved]
  - Hypertension [Not Recovered/Not Resolved]
  - Pulmonary fibrosis [Not Recovered/Not Resolved]
  - Anti-cyclic citrullinated peptide antibody positive [Not Recovered/Not Resolved]
  - Drug intolerance [Not Recovered/Not Resolved]
  - Limb discomfort [Not Recovered/Not Resolved]
  - Ill-defined disorder [Not Recovered/Not Resolved]
  - Hand deformity [Not Recovered/Not Resolved]
  - Foot deformity [Not Recovered/Not Resolved]
  - Malaise [Not Recovered/Not Resolved]
  - Headache [Unknown]
  - Hypogammaglobulinaemia [Unknown]
  - Adrenal insufficiency [Not Recovered/Not Resolved]
  - Blood pressure increased [Not Recovered/Not Resolved]
  - Diarrhoea [Not Recovered/Not Resolved]
  - Dizziness [Not Recovered/Not Resolved]
  - Drug tolerance [Not Recovered/Not Resolved]
  - Gastroenteritis viral [Not Recovered/Not Resolved]
  - Hypocalcaemia [Not Recovered/Not Resolved]
  - Hypokalaemia [Not Recovered/Not Resolved]
  - Hypotension [Not Recovered/Not Resolved]
  - Immunodeficiency [Not Recovered/Not Resolved]
  - Joint destruction [Not Recovered/Not Resolved]
  - Loss of personal independence in daily activities [Not Recovered/Not Resolved]
  - Obesity [Not Recovered/Not Resolved]
  - Pleural effusion [Not Recovered/Not Resolved]
  - Polyarthritis [Not Recovered/Not Resolved]
  - Psoriasis [Not Recovered/Not Resolved]
  - Pyrexia [Not Recovered/Not Resolved]
  - Septic shock [Not Recovered/Not Resolved]
  - Therapeutic product effect decreased [Not Recovered/Not Resolved]
  - Therapy non-responder [Not Recovered/Not Resolved]
  - Vomiting [Not Recovered/Not Resolved]
  - Arthritis [Not Recovered/Not Resolved]
  - Off label use [Unknown]
  - Systemic lupus erythematosus [Not Recovered/Not Resolved]
  - Pemphigus [Not Recovered/Not Resolved]
  - Abdominal discomfort [Not Recovered/Not Resolved]
  - Abdominal pain [Not Recovered/Not Resolved]
  - Alopecia [Not Recovered/Not Resolved]
  - Fatigue [Not Recovered/Not Resolved]
  - Fibromyalgia [Not Recovered/Not Resolved]
  - Glossodynia [Not Recovered/Not Resolved]
  - Oedema [Not Recovered/Not Resolved]
  - Pain [Not Recovered/Not Resolved]
  - Swelling [Not Recovered/Not Resolved]
